FAERS Safety Report 4461762-0 (Version None)
Quarter: 2004Q3

REPORT INFORMATION
  Report Type: 
  Country: None (occurrence: None)
  Receive Date: 20040929
  Receipt Date: 20031003
  Transmission Date: 20050211
  Serious: No
  Sender: FDA-Public Use
  Company Number: US-GLAXOSMITHKLINE-A0429826A

PATIENT
  Age: 63 Year
  Sex: Female

DRUGS (3)
  1. SEREVENT [Suspect]
     Indication: EMPHYSEMA
     Dosage: 2PUFF PER DAY
     Route: 055
  2. SEREVENT [Concomitant]
     Dosage: 2PUFF PER DAY
     Route: 055
  3. COMBIVENT [Concomitant]
     Indication: ILL-DEFINED DISORDER

REACTIONS (2)
  - CHEST WALL PAIN [None]
  - DRUG INEFFECTIVE [None]
